FAERS Safety Report 6426221-4 (Version None)
Quarter: 2009Q4

REPORT INFORMATION
  Report Type: 
  Country: None (occurrence: None)
  Receive Date: 20091103
  Receipt Date: 20091103
  Transmission Date: 20100525
  Serious: No
  Sender: FDA-Public Use
  Company Number: None

PATIENT
  Age: 47 Year
  Sex: Male

DRUGS (1)
  1. PHENYTOIN [Suspect]
     Indication: CONVULSION
     Dosage: 400 MG BID PO
     Route: 048
     Dates: start: 20081006, end: 20081009

REACTIONS (4)
  - NYSTAGMUS [None]
  - RASH [None]
  - TREMOR [None]
  - VISION BLURRED [None]
